FAERS Safety Report 21301865 (Version 1)
Quarter: 2022Q3

REPORT INFORMATION
  Report Type: Spontaneous
  Country: US (occurrence: None)
  Receive Date: 20220906
  Receipt Date: 20220906
  Transmission Date: 20221027
  Serious: No
  Sender: FDA-Public Use
  Company Number: None

PATIENT
  Age: 34 Year
  Sex: Female
  Weight: 59.4 kg

DRUGS (6)
  1. QVAR REDIHALER [Suspect]
     Active Substance: BECLOMETHASONE DIPROPIONATE
     Dosage: OTHER QUANTITY : 120 INHALATION(S);?FREQUENCY : TWICE A DAY;?
     Route: 055
  2. LEVETIRACETAM [Concomitant]
     Active Substance: LEVETIRACETAM
  3. SINGULAIR [Concomitant]
     Active Substance: MONTELUKAST SODIUM
  4. NORTREL [Concomitant]
     Active Substance: ETHINYL ESTRADIOL\NORETHINDRONE
  5. VITAMIN B [Concomitant]
     Active Substance: VITAMIN B
  6. VITAMIN D [Concomitant]
     Active Substance: VITAMIN D NOS

REACTIONS (5)
  - Device defective [None]
  - Cough [None]
  - Nausea [None]
  - Product solubility abnormal [None]
  - Oropharyngeal pain [None]

NARRATIVE: CASE EVENT DATE: 20220906
